FAERS Safety Report 9299420 (Version 3)
Quarter: 2013Q2

REPORT INFORMATION
  Report Type: Spontaneous
  Country: US (occurrence: US)
  Receive Date: 20130520
  Receipt Date: 20130613
  Transmission Date: 20140414
  Serious: Yes (Death, Hospitalization, Other)
  Sender: FDA-Public Use
  Company Number: US201110004549

PATIENT
  Age: 44 Year
  Sex: Female
  Weight: 102.04 kg

DRUGS (20)
  1. BYETTA [Suspect]
     Route: 058
     Dates: start: 20060406, end: 2007
  2. AMARYL [Concomitant]
  3. ALLEGRA [Concomitant]
     Dosage: DOSE VALUE:180MG
  4. FLOVENT [Concomitant]
  5. BENICAR [Concomitant]
  6. PROTONIX [Concomitant]
  7. ALBUTEROL [Concomitant]
     Indication: DYSPNOEA
  8. COLACE [Concomitant]
     Route: 048
  9. SENOKOT [Concomitant]
     Route: 048
  10. MS CONTIN [Concomitant]
     Route: 048
  11. DULCOLAX [Concomitant]
     Indication: CONSTIPATION
     Route: 054
  12. GEMZAR [Concomitant]
  13. OXALIPLATIN [Concomitant]
  14. TARCEVA [Concomitant]
  15. LEXAPRO [Concomitant]
  16. HYDROCHLOROTHIAZIDE [Concomitant]
  17. PREVACID [Concomitant]
  18. ALBUTEROL [Concomitant]
  19. SINGULAIR [Concomitant]
  20. ACTOS [Concomitant]

REACTIONS (4)
  - Pancreatic carcinoma [Fatal]
  - Metastatic neoplasm [Fatal]
  - Cholelithiasis [Unknown]
  - Weight decreased [Unknown]
